FAERS Safety Report 25122512 (Version 1)
Quarter: 2025Q1

REPORT INFORMATION
  Report Type: Spontaneous
  Country: US (occurrence: US)
  Receive Date: 20250326
  Receipt Date: 20250326
  Transmission Date: 20250409
  Serious: No
  Sender: ALCON
  Company Number: US-ALCON LABORATORIES-ALC2024US002256

PATIENT
  Age: 34 Year
  Sex: Male

DRUGS (1)
  1. PATADAY ONCE DAILY RELIEF [Suspect]
     Active Substance: OLOPATADINE HYDROCHLORIDE
     Indication: Seasonal allergy
     Route: 047

REACTIONS (4)
  - Drug ineffective [Unknown]
  - Patient dissatisfaction with treatment [Unknown]
  - Eye discharge [Recovering/Resolving]
  - Dry eye [Recovering/Resolving]
